FAERS Safety Report 16447867 (Version 1)
Quarter: 2019Q2

REPORT INFORMATION
  Report Type: Report from Study
  Country: None (occurrence: US)
  Receive Date: 20190619
  Receipt Date: 20190619
  Transmission Date: 20190711
  Serious: Yes (Other)
  Sender: FDA-Public Use
  Company Number: US-ABBVIE-18K-163-2583246-00

PATIENT
  Age: 49 Year
  Sex: Female

DRUGS (2)
  1. METHOTREXATE. [Suspect]
     Active Substance: METHOTREXATE
     Indication: PRODUCT USED FOR UNKNOWN INDICATION
     Route: 065
  2. HUMIRA [Suspect]
     Active Substance: ADALIMUMAB
     Indication: ANKYLOSING SPONDYLITIS
     Route: 058
     Dates: start: 20181205

REACTIONS (24)
  - Injection site erythema [Unknown]
  - Neck pain [Recovering/Resolving]
  - Mobility decreased [Not Recovered/Not Resolved]
  - Injection site bruising [Unknown]
  - Urinary incontinence [Unknown]
  - Fatigue [Recovering/Resolving]
  - Joint swelling [Unknown]
  - Lethargy [Not Recovered/Not Resolved]
  - Nasopharyngitis [Recovered/Resolved]
  - Joint range of motion decreased [Not Recovered/Not Resolved]
  - Gastrointestinal polyp [Unknown]
  - Musculoskeletal stiffness [Unknown]
  - Loss of personal independence in daily activities [Not Recovered/Not Resolved]
  - Feeling hot [Unknown]
  - Fatigue [Unknown]
  - Musculoskeletal discomfort [Unknown]
  - Erythema [Unknown]
  - General physical health deterioration [Unknown]
  - Flushing [Unknown]
  - Arthralgia [Recovering/Resolving]
  - Nausea [Unknown]
  - Drug ineffective [Unknown]
  - Eye inflammation [Recovering/Resolving]
  - Back pain [Recovering/Resolving]

NARRATIVE: CASE EVENT DATE: 201812
